FAERS Safety Report 5814029-X (Version None)
Quarter: 2008Q3

REPORT INFORMATION
  Report Type: 
  Country: None (occurrence: None)
  Receive Date: 20080717
  Receipt Date: 20080705
  Transmission Date: 20090109
  Serious: Yes (Other)
  Sender: FDA-Public Use
  Company Number: US-PFIZER INC-2008045233

PATIENT
  Sex: Female
  Weight: 68 kg

DRUGS (4)
  1. AROMASIN [Suspect]
     Indication: BREAST CANCER
     Route: 048
  2. SYNTHROID [Concomitant]
     Indication: HYPOTHYROIDISM
     Dosage: DAILY DOSE:100MCG-FREQ:DAILY
  3. BENICAR HCT [Concomitant]
     Dosage: TEXT:40/12.5
  4. MULTI-VITAMINS [Concomitant]

REACTIONS (6)
  - CONDITION AGGRAVATED [None]
  - HYPOAESTHESIA [None]
  - INTERVERTEBRAL DISC SPACE NARROWING [None]
  - PAIN IN EXTREMITY [None]
  - PARAESTHESIA [None]
  - RASH [None]
